FAERS Safety Report 14582250 (Version 14)
Quarter: 2019Q2

REPORT INFORMATION
  Report Type: Spontaneous
  Country: PL (occurrence: PL)
  Receive Date: 20180228
  Receipt Date: 20190522
  Transmission Date: 20190711
  Serious: Yes (Death, Hospitalization, Other)
  Sender: FDA-Public Use
  Company Number: PL-MYLANLABS-2018M1012553

PATIENT
  Age: 56 Year
  Sex: Female

DRUGS (30)
  1. BORTEZOMIB. [Suspect]
     Active Substance: BORTEZOMIB
     Indication: CHEMOTHERAPY
     Dosage: UNK,DOSAGE FORM: LYOPHILIZED POWDER, 2 CYCLES
     Route: 065
  2. CYCLOPHOSPHAMIDE. [Suspect]
     Active Substance: CYCLOPHOSPHAMIDE
     Indication: PLASMA CELL MYELOMA
     Dosage: UNK, CYCLE, QCYCLE; UNSPECIFIED, CTD REGIMEN
     Route: 065
  3. IMMUNOGLOBULIN                     /00025201/ [Suspect]
     Active Substance: HUMAN IMMUNOGLOBULIN G
     Indication: PRODUCT USED FOR UNKNOWN INDICATION
     Dosage: UNK
     Route: 065
  4. THALIDOMIDE [Suspect]
     Active Substance: THALIDOMIDE
     Indication: CHEMOTHERAPY
     Dosage: UNK, UNK; UNSPECIFIED, CTD REGIMEN
     Route: 065
  5. THALIDOMIDE [Suspect]
     Active Substance: THALIDOMIDE
     Dosage: UNK
     Route: 065
  6. ENDOXANA [Suspect]
     Active Substance: CYCLOPHOSPHAMIDE
     Indication: PLASMA CELL MYELOMA
     Dosage: UNK, CYCLE,UNK (VD-PACE)
     Route: 065
  7. DEXAMETHASONE. [Suspect]
     Active Substance: DEXAMETHASONE
     Indication: PLASMA CELL MYELOMA
     Dosage: UNK, CYCLE,VD-PACE; DOSAGE FORM: UNSPECIFIED, CTD REGIMENUNK,
     Route: 065
  8. MELPHALAN. [Suspect]
     Active Substance: MELPHALAN
     Indication: PLASMA CELL MYELOMA
     Dosage: 120 MG, UNK HIGH DOSE
     Route: 065
  9. DOXORUBICIN [Suspect]
     Active Substance: DOXORUBICIN
     Indication: CHEMOTHERAPY
  10. BENDAMUSTINE HYDROCHLORIDE. [Suspect]
     Active Substance: BENDAMUSTINE HYDROCHLORIDE
     Indication: PLASMA CELL MYELOMA
     Dosage: UNK, CYCLE
     Route: 042
  11. MICAFUNGIN. [Suspect]
     Active Substance: MICAFUNGIN SODIUM
     Dosage: UNK
     Route: 065
  12. ETOPOSIDE. [Suspect]
     Active Substance: ETOPOSIDE
     Indication: PLASMA CELL MYELOMA
     Dosage: UNK, QCYCLE; UNSPECIFIED, VD-PACE
     Route: 065
  13. CYCLOPHOSPHAMIDE. [Suspect]
     Active Substance: CYCLOPHOSPHAMIDE
     Indication: CHEMOTHERAPY
     Dosage: (VD-PACE)UNK
     Route: 065
  14. CISPLATIN. [Suspect]
     Active Substance: CISPLATIN
     Indication: CHEMOTHERAPY
     Dosage: UNK (VD-PACE)
     Route: 065
  15. MELPHALAN. [Suspect]
     Active Substance: MELPHALAN
     Dosage: 120 MILLIGRAM
     Route: 065
  16. MICAFUNGIN. [Suspect]
     Active Substance: MICAFUNGIN SODIUM
     Indication: CANDIDA INFECTION
     Dosage: 200 MG, QD
     Route: 065
  17. MICAFUNGIN. [Suspect]
     Active Substance: MICAFUNGIN SODIUM
     Dosage: 100 MG, QD
     Route: 065
  18. BORTEZOMIB. [Suspect]
     Active Substance: BORTEZOMIB
     Indication: PLASMA CELL MYELOMA
     Dosage: UNK, QCYCLE; UNSPECIFIED, CTD REGIMEN; DOSAGE FORM: UNSPECIFIED, VD-PACE
     Route: 065
  19. CISPLATIN. [Suspect]
     Active Substance: CISPLATIN
     Indication: PLASMA CELL MYELOMA
     Dosage: UNK, CYCLE,QCYCLE; UNSPECIFIED, VD-PACE
     Route: 065
  20. ENDOXANA [Suspect]
     Active Substance: CYCLOPHOSPHAMIDE
     Indication: CHEMOTHERAPY
     Dosage: UNK, CYCLE
     Route: 065
  21. DEXAMETHASONE. [Suspect]
     Active Substance: DEXAMETHASONE
     Indication: CHEMOTHERAPY
     Dosage: UNK, CYCLE
     Route: 065
  22. MELPHALAN. [Suspect]
     Active Substance: MELPHALAN
     Indication: BONE MARROW CONDITIONING REGIMEN
     Dosage: UNK
     Route: 065
  23. FLUCONAZOLE. [Suspect]
     Active Substance: FLUCONAZOLE
     Indication: PRODUCT USED FOR UNKNOWN INDICATION
     Dosage: UNK
     Route: 065
  24. LENALIDOMIDE [Suspect]
     Active Substance: LENALIDOMIDE
     Dosage: UNK
     Route: 065
  25. IMMUNOGLOBULIN                     /00025201/ [Suspect]
     Active Substance: HUMAN IMMUNOGLOBULIN G
     Indication: PRODUCT USED FOR UNKNOWN INDICATION
     Dosage: UNK
     Route: 065
  26. ETOPOSIDE. [Suspect]
     Active Substance: ETOPOSIDE
     Indication: CHEMOTHERAPY
     Dosage: UNK, CYCLE
     Route: 065
  27. DOXORUBICIN [Suspect]
     Active Substance: DOXORUBICIN
     Indication: PLASMA CELL MYELOMA
     Dosage: UNK, CYCLE, (VD-PACE)
     Route: 065
  28. BENDAMUSTINE HYDROCHLORIDE. [Suspect]
     Active Substance: BENDAMUSTINE HYDROCHLORIDE
     Dosage: UNK
     Route: 065
  29. LENALIDOMIDE [Suspect]
     Active Substance: LENALIDOMIDE
     Indication: PLASMA CELL MYELOMA
     Dosage: UNK, CYCLE
     Route: 065
  30. DEXAMETHASONE. [Concomitant]
     Active Substance: DEXAMETHASONE
     Indication: PLASMA CELL MYELOMA
     Dosage: UNK, CYCLE

REACTIONS (27)
  - Varicella zoster virus infection [Fatal]
  - Gastrointestinal fungal infection [Fatal]
  - Nasal abscess [Fatal]
  - Disease progression [Fatal]
  - Pain [Fatal]
  - Oral fungal infection [Fatal]
  - Oral disorder [Fatal]
  - Mucosal erosion [Fatal]
  - Sepsis [Fatal]
  - Pulmonary mycosis [Fatal]
  - Acute sinusitis [Fatal]
  - Abscess [Fatal]
  - Fungal oesophagitis [Fatal]
  - Herpes zoster [Fatal]
  - Fungal infection [Fatal]
  - Enterococcal infection [Unknown]
  - Plasma cell myeloma [Fatal]
  - Pancytopenia [Fatal]
  - Mucosal inflammation [Fatal]
  - Sinusitis [Fatal]
  - Enterococcal sepsis [Fatal]
  - Sinus polyp [Fatal]
  - Malignant neoplasm progression [Fatal]
  - Plasma cell leukaemia [Fatal]
  - Pneumonia fungal [Fatal]
  - Candida infection [Fatal]
  - Bacterial sepsis [Unknown]

NARRATIVE: CASE EVENT DATE: 2017
